FAERS Safety Report 16879100 (Version 1)
Quarter: 2019Q4

REPORT INFORMATION
  Report Type: Spontaneous
  Country: DE (occurrence: DE)
  Receive Date: 20191003
  Receipt Date: 20191003
  Transmission Date: 20200122
  Serious: Yes (Other)
  Sender: FDA-Public Use
  Company Number: DE-009507513-1909DEU008902

PATIENT
  Age: 79 Year
  Sex: Female

DRUGS (13)
  1. BISOPROLOL [Concomitant]
     Active Substance: BISOPROLOL
     Dosage: 0.5 DOSAGE FORM, QD, TABLET
  2. SODIUM CHLORIDE. [Concomitant]
     Active Substance: SODIUM CHLORIDE
     Dosage: 1000 MG Q8H, TABLET
  3. INSULIN GLARGINE [Concomitant]
     Active Substance: INSULIN GLARGINE
     Dosage: 24 INTERNATIONAL UNIT, SOLUTION FOR INJECTION IN PRE-FILLED PEN
  4. TORSEMIDE. [Concomitant]
     Active Substance: TORSEMIDE
     Dosage: 0.5 DOSAGE FORM, QD, TABLET
  5. ASS 100 [Concomitant]
     Active Substance: ASPIRIN
     Dosage: 100 MILLIGRAM, QD, TABLET
  6. ACTRAPHANE [Concomitant]
     Active Substance: INSULIN HUMAN
     Dosage: 22 INTERNATIONAL UNIT, QD, SOLUTION FOR INJECTION IN PRE-FILLED PEN
  7. L-THYROXIN [Concomitant]
     Active Substance: LEVOTHYROXINE SODIUM
     Dosage: 175 MICROGRAM, QD, TABLET
  8. INVANZ [Suspect]
     Active Substance: ERTAPENEM SODIUM
     Indication: LIVER ABSCESS
     Dosage: 1 GRAM, POWDER FOR CONCENTRATE FOR SOLUTION FOR INFUSION
     Route: 042
     Dates: start: 20190819, end: 20190822
  9. ESOMEPRAZOLE. [Concomitant]
     Active Substance: ESOMEPRAZOLE MAGNESIUM
     Dosage: 40 MILLIGRAM, QD, TABLET
  10. DIPYRONE [Concomitant]
     Active Substance: DIPYRONE
     Dosage: 500 MILLIGRAM, AS NECESSARY, TABLET
  11. URSOFALK [Concomitant]
     Active Substance: URSODIOL
     Dosage: 250 MILLIGRAM, Q8H, CAPSULE
  12. JARDIANCE [Concomitant]
     Active Substance: EMPAGLIFLOZIN
     Dosage: 10 MILLIGRAM, QD, TABLET
  13. KREON [Concomitant]
     Active Substance: PANCRELIPASE
     Dosage: 25000, INTERNATIONAL UNIT, Q8H, CAPSULE

REACTIONS (1)
  - Epilepsy [Recovered/Resolved]

NARRATIVE: CASE EVENT DATE: 20190822
